FAERS Safety Report 11230793 (Version 3)
Quarter: 2015Q3

REPORT INFORMATION
  Report Type: Spontaneous
  Country: GB (occurrence: GB)
  Receive Date: 20150701
  Receipt Date: 20150827
  Transmission Date: 20151125
  Serious: Yes (Other)
  Sender: FDA-Public Use
  Company Number: GB-ROCHE-1262260

PATIENT
  Age: 67 Year
  Sex: Female

DRUGS (1)
  1. HERCEPTIN [Suspect]
     Active Substance: TRASTUZUMAB
     Indication: PRODUCT USED FOR UNKNOWN INDICATION
     Dosage: CYCLE 8
     Route: 058

REACTIONS (25)
  - Fatigue [Unknown]
  - Sleep disorder [Unknown]
  - Somnolence [Unknown]
  - Back pain [Unknown]
  - Urinary incontinence [Unknown]
  - Metastases to central nervous system [Unknown]
  - Paraesthesia [Unknown]
  - Hypophagia [Unknown]
  - Vulvovaginal pruritus [Unknown]
  - Mobility decreased [Unknown]
  - Abdominal discomfort [Unknown]
  - Syncope [Unknown]
  - Constipation [Unknown]
  - Joint stiffness [Unknown]
  - Faecal incontinence [Unknown]
  - Amnesia [Unknown]
  - Diarrhoea [Unknown]
  - Decreased appetite [Unknown]
  - Memory impairment [Unknown]
  - Faeces hard [Unknown]
  - Neuropathy peripheral [Unknown]
  - Asthenia [Unknown]
  - Fall [Unknown]
  - Vulvovaginal discomfort [Unknown]
  - Incontinence [Unknown]

NARRATIVE: CASE EVENT DATE: 20141025
